FAERS Safety Report 10056769 (Version 1)
Quarter: 2014Q2

REPORT INFORMATION
  Report Type: Spontaneous
  Country: FR (occurrence: FR)
  Receive Date: 20140403
  Receipt Date: 20140403
  Transmission Date: 20141212
  Serious: Yes (Hospitalization)
  Sender: FDA-Public Use
  Company Number: FR-GLAXOSMITHKLINE-B0980791A

PATIENT
  Age: 57 Year
  Sex: Female

DRUGS (15)
  1. ZINNAT [Suspect]
     Indication: LUNG INFECTION
     Route: 048
     Dates: start: 20140210, end: 20140212
  2. SERETIDE [Suspect]
     Indication: BRONCHIAL DISORDER
     Route: 055
     Dates: end: 20140213
  3. METHOTREXATE [Suspect]
     Indication: RHEUMATOID ARTHRITIS
     Dosage: 10MGML WEEKLY
     Route: 030
     Dates: start: 20131215, end: 20140213
  4. RISPERDAL [Suspect]
     Indication: MENTAL DISORDER
     Dosage: .5MG PER DAY
     Route: 048
     Dates: start: 20131003, end: 20140213
  5. SERTRALINE [Suspect]
     Indication: MENTAL DISORDER
     Route: 048
     Dates: start: 20131107, end: 20140213
  6. OLANZAPINE [Suspect]
     Indication: MENTAL DISORDER
     Route: 048
     Dates: start: 20131107, end: 20140213
  7. ACTONEL [Suspect]
     Indication: OSTEOPOROSIS
     Dosage: 35MG PER DAY
     Route: 048
     Dates: end: 20140213
  8. COVERAM [Suspect]
     Indication: HYPERTENSION
     Dosage: 5MG PER DAY
     Route: 048
     Dates: end: 20140210
  9. EFFERALGAN [Suspect]
     Indication: PAIN
     Dosage: 1G THREE TIMES PER DAY
     Route: 048
     Dates: end: 20140213
  10. IXPRIM [Suspect]
     Indication: PAIN
     Route: 048
     Dates: end: 20140213
  11. PANTOPRAZOLE [Suspect]
     Indication: PROPHYLAXIS AGAINST GASTROINTESTINAL ULCER
     Route: 048
     Dates: end: 20140213
  12. SULFARLEM [Suspect]
     Indication: CHRONIC OBSTRUCTIVE PULMONARY DISEASE
     Route: 048
     Dates: end: 20140213
  13. DIFFU K [Suspect]
     Indication: HYPOKALAEMIA
     Route: 048
  14. DITROPAN [Suspect]
     Indication: URINARY INCONTINENCE
     Dosage: 5MG PER DAY
     Route: 048
     Dates: end: 20140213
  15. SPECIAFOLDINE [Concomitant]
     Indication: ANAEMIA
     Dosage: 5MG PER DAY
     Route: 048

REACTIONS (3)
  - Hepatitis [Recovering/Resolving]
  - Transaminases increased [Recovering/Resolving]
  - Gamma-glutamyltransferase increased [Recovered/Resolved]
